FAERS Safety Report 5948105-8 (Version None)
Quarter: 2008Q4

REPORT INFORMATION
  Report Type: 
  Country: None (occurrence: None)
  Receive Date: 20081111
  Receipt Date: 20081103
  Transmission Date: 20090506
  Serious: Yes (Other)
  Sender: FDA-Public Use
  Company Number: US-ROCHE-595051

PATIENT
  Age: 75 Year
  Sex: Female

DRUGS (6)
  1. BONIVA [Suspect]
     Indication: OSTEOPENIA
     Route: 048
     Dates: start: 20080710
  2. ARIMIDEX [Concomitant]
     Dosage: DRUG REPORTED: ARIMEDEX
  3. RESTASIS [Concomitant]
  4. SYNTHROID [Concomitant]
  5. CALCIUM/VITAMIN D [Concomitant]
  6. FISH OIL [Concomitant]

REACTIONS (2)
  - ARTHRALGIA [None]
  - CARDIAC OPERATION [None]
